FAERS Safety Report 11448821 (Version 1)
Quarter: 2015Q3

REPORT INFORMATION
  Report Type: Spontaneous
  Country: US (occurrence: US)
  Receive Date: 20150902
  Receipt Date: 20150902
  Transmission Date: 20151125
  Serious: No
  Sender: FDA-Public Use
  Company Number: US-GLAXOSMITHKLINE-US2015124038

PATIENT
  Age: 71 Year
  Sex: Female

DRUGS (1)
  1. NICODERM CQ [Suspect]
     Active Substance: NICOTINE
     Indication: SMOKING CESSATION THERAPY
     Dosage: 21 MG, UNK
     Dates: start: 20150826, end: 20150826

REACTIONS (4)
  - Urticaria [Recovered/Resolved]
  - Application site reaction [Recovered/Resolved]
  - Application site pruritus [Recovered/Resolved]
  - Application site erythema [Not Recovered/Not Resolved]
